FAERS Safety Report 5268798-0 (Version None)
Quarter: 2007Q1

REPORT INFORMATION
  Report Type: 
  Country: None (occurrence: None)
  Receive Date: 20070319
  Receipt Date: 20070307
  Transmission Date: 20070707
  Serious: Yes (Hospitalization)
  Sender: FDA-Public Use
  Company Number: PHRM2007FR00996

PATIENT
  Age: 59 Year
  Sex: Male
  Weight: 54 kg

DRUGS (11)
  1. ZOMETA [Suspect]
     Indication: METASTASES TO BONE
     Route: 042
     Dates: start: 20061227, end: 20061227
  2. GEMZAR [Suspect]
     Indication: LUNG CANCER METASTATIC
     Dates: start: 20061227, end: 20061227
  3. ALIMTA [Suspect]
     Indication: LUNG CANCER METASTATIC
     Dates: start: 20061227, end: 20061227
  4. SOLUPRED [Concomitant]
     Route: 048
  5. SKENAN [Concomitant]
     Route: 048
     Dates: start: 20061227
  6. LYRICA [Concomitant]
     Route: 048
     Dates: start: 20061211
  7. ESOMEPRAZOLE MAGNESIUM [Concomitant]
     Dates: start: 20060601
  8. STABLON [Concomitant]
     Dates: start: 20060601
  9. ACTISKENAN [Concomitant]
     Dates: start: 20061227
  10. FORLAX [Concomitant]
     Dates: start: 20061227
  11. VOLUVEN [Concomitant]

REACTIONS (14)
  - BLOOD CREATININE INCREASED [None]
  - BLOOD UREA INCREASED [None]
  - CONFUSIONAL STATE [None]
  - CREATININE RENAL CLEARANCE DECREASED [None]
  - DEHYDRATION [None]
  - DISORIENTATION [None]
  - GENERAL PHYSICAL HEALTH DETERIORATION [None]
  - HALLUCINATION, VISUAL [None]
  - HYPERKALAEMIA [None]
  - HYPONATRAEMIA [None]
  - MIOSIS [None]
  - PAIN [None]
  - RENAL FAILURE ACUTE [None]
  - SOMNOLENCE [None]
